FAERS Safety Report 5514465-5 (Version None)
Quarter: 2007Q4

REPORT INFORMATION
  Report Type: 
  Country: None (occurrence: None)
  Receive Date: 20071113
  Receipt Date: 20070530
  Transmission Date: 20080405
  Serious: No
  Sender: FDA-Public Use
  Company Number: A0653766A

PATIENT
  Age: 70 Year
  Sex: Female

DRUGS (10)
  1. COREG [Suspect]
     Route: 048
     Dates: start: 20070221
  2. PLAVIX [Concomitant]
  3. IMDUR [Concomitant]
  4. HYDRALAZINE HCL [Concomitant]
  5. NORVASC [Concomitant]
  6. SIMVASTATIN [Concomitant]
  7. LASIX [Concomitant]
  8. GLIPIZIDE [Concomitant]
  9. UNKNOWN [Concomitant]
  10. UNIPHYL [Concomitant]

REACTIONS (4)
  - BLOOD GLUCOSE INCREASED [None]
  - FATIGUE [None]
  - GLYCOSYLATED HAEMOGLOBIN INCREASED [None]
  - HYPERTENSION [None]
